FAERS Safety Report 9339007 (Version 2)
Quarter: 2013Q2

REPORT INFORMATION
  Report Type: Report from Study
  Country: US (occurrence: US)
  Receive Date: 20130610
  Receipt Date: 20130620
  Transmission Date: 20140414
  Serious: Yes (Other)
  Sender: FDA-Public Use
  Company Number: US-ELI_LILLY_AND_COMPANY-US201303010174

PATIENT
  Age: 84 Year
  Sex: Male

DRUGS (2)
  1. TERIPARATIDE [Suspect]
     Indication: OSTEOPOROSIS
     Dosage: UNK, QD
     Dates: start: 201303
  2. TERIPARATIDE [Suspect]
     Dosage: UNK, QD

REACTIONS (10)
  - Haematuria [Unknown]
  - Pulmonary mass [Unknown]
  - Spinal fracture [Unknown]
  - Bone pain [Unknown]
  - Abdominal distension [Unknown]
  - Pain [Unknown]
  - Constipation [Unknown]
  - Weight decreased [Unknown]
  - Nausea [Unknown]
  - Oedema peripheral [Unknown]
